FAERS Safety Report 6032892-7 (Version None)
Quarter: 2009Q1

REPORT INFORMATION
  Report Type: 
  Country: None (occurrence: None)
  Receive Date: 20090105
  Receipt Date: 20071120
  Transmission Date: 20090719
  Serious: Yes (Hospitalization)
  Sender: FDA-Public Use
  Company Number: BDI-010608

PATIENT
  Age: 55 Year
  Sex: Female
  Weight: 53 kg

DRUGS (2)
  1. PROHANCE [Suspect]
     Indication: ANGIOGRAM
     Dosage: 40ML ONCE INTRAVENOUS
     Route: 042
     Dates: start: 20071119, end: 20071119
  2. PROHANCE [Suspect]
     Indication: PULSE ABSENT
     Dosage: 40ML ONCE INTRAVENOUS
     Route: 042
     Dates: start: 20071119, end: 20071119

REACTIONS (1)
  - ANAPHYLACTOID REACTION [None]
